FAERS Safety Report 9161310 (Version 1)
Quarter: 2013Q1

REPORT INFORMATION
  Report Type: Report from Study
  Country: US (occurrence: US)
  Receive Date: 20130313
  Receipt Date: 20130313
  Transmission Date: 20140127
  Serious: No
  Sender: FDA-Public Use
  Company Number: US-009507513-1303USA005883

PATIENT
  Sex: Female

DRUGS (7)
  1. BOCEPREVIR [Suspect]
     Indication: HEPATITIS C
     Dosage: 4 DF, TID
     Route: 048
  2. RIBASPHERE [Suspect]
     Indication: CHRONIC HEPATITIS C
     Dosage: 1200 MG, QD IN DIVIDED DOSES
     Route: 048
     Dates: start: 20111220
  3. PEGINTERFERON ALFA-2A [Suspect]
     Indication: CHRONIC HEPATITIS C
     Dosage: 180 MICROGRAM, QW
     Route: 058
     Dates: start: 20111220
  4. AMLODIPINE [Concomitant]
  5. KLOR-CON [Concomitant]
  6. IBUPROFEN [Concomitant]
  7. FUROSEMIDE [Concomitant]

REACTIONS (6)
  - Feeling cold [Unknown]
  - Dyspnoea exertional [Unknown]
  - Epistaxis [Unknown]
  - Dry skin [Unknown]
  - White blood cell count decreased [Unknown]
  - Red blood cell count decreased [Unknown]
